FAERS Safety Report 6858751-5 (Version None)
Quarter: 2010Q3

REPORT INFORMATION
  Report Type: 
  Country: None (occurrence: None)
  Receive Date: 20100719
  Receipt Date: 20080214
  Transmission Date: 20110219
  Serious: No
  Sender: FDA-Public Use
  Company Number: US-PFIZER INC-2008014309

PATIENT
  Sex: Male
  Weight: 59.1 kg

DRUGS (6)
  1. CHANTIX [Suspect]
     Indication: SMOKING CESSATION THERAPY
  2. LORTAB [Concomitant]
  3. LYRICA [Concomitant]
  4. CYTOTEC [Concomitant]
  5. ALLEGRA [Concomitant]
  6. XANAX [Concomitant]

REACTIONS (3)
  - BODY HEIGHT DECREASED [None]
  - DECREASED APPETITE [None]
  - WEIGHT DECREASED [None]
